FAERS Safety Report 9675773 (Version 3)
Quarter: 2014Q1

REPORT INFORMATION
  Report Type: Spontaneous
  Country: JP (occurrence: JP)
  Receive Date: 20131107
  Receipt Date: 20140305
  Transmission Date: 20141002
  Serious: Yes (Other)
  Sender: FDA-Public Use
  Company Number: JP-PFIZER INC-2013316532

PATIENT
  Age: 15 Year
  Sex: Female

DRUGS (5)
  1. GABAPEN [Suspect]
     Indication: EPILEPSY
     Dosage: 200 MG, 1X/DAY
     Route: 048
     Dates: start: 20130606, end: 20131016
  2. GABAPEN [Suspect]
     Dosage: 400 MG, 1X/DAY
     Route: 048
     Dates: start: 20131017, end: 20131031
  3. ONON [Concomitant]
     Indication: ASTHMA
     Dosage: 22.5 MG, DAILY
     Route: 048
     Dates: start: 20110912
  4. METLIGINE [Concomitant]
     Indication: ORTHOSTATIC HYPOTENSION
     Dosage: 4 MG, DAILY
     Route: 048
     Dates: start: 20111117
  5. DEPAKENE R [Concomitant]
     Indication: EPILEPSY
     Dosage: 500 MG, 2X/DAY
     Route: 048
     Dates: start: 20121225

REACTIONS (2)
  - IVth nerve paralysis [Recovered/Resolved]
  - Eye pain [Recovered/Resolved]
